FAERS Safety Report 9226692 (Version 1)
Quarter: 2013Q2

REPORT INFORMATION
  Report Type: Spontaneous
  Country: US (occurrence: None)
  Receive Date: 20130410
  Receipt Date: 20130410
  Transmission Date: 20140414
  Serious: Yes (Hospitalization)
  Sender: FDA-Public Use
  Company Number: None

PATIENT
  Age: 98 None
  Sex: Female
  Weight: 60 kg

DRUGS (5)
  1. ASA [Suspect]
     Indication: ATRIAL FIBRILLATION
  2. PROTONIX [Concomitant]
  3. MVI [Concomitant]
  4. B12 [Concomitant]
  5. DILTIAZEM [Concomitant]

REACTIONS (6)
  - Asthenia [None]
  - Faeces discoloured [None]
  - Haemorrhagic anaemia [None]
  - Occult blood positive [None]
  - Gastrointestinal arteriovenous malformation [None]
  - Haemorrhagic arteriovenous malformation [None]
